FAERS Safety Report 5593535-X (Version None)
Quarter: 2008Q1

REPORT INFORMATION
  Report Type: 
  Country: None (occurrence: None)
  Receive Date: 20080116
  Receipt Date: 20080109
  Transmission Date: 20080703
  Serious: Yes (Hospitalization, Other)
  Sender: FDA-Public Use
  Company Number: GB-ROCHE-536430

PATIENT
  Age: 72 Year
  Sex: Female
  Weight: 97.5 kg

DRUGS (7)
  1. ORLISTAT [Suspect]
     Indication: OBESITY
     Route: 048
     Dates: start: 20070430
  2. AMITRIPTYLINE HCL [Concomitant]
     Indication: ARTHRITIS
     Dosage: DRUG: AMIPTRICYLINE. OTHER INDICATION: NEUROPATHIC PAIN.
     Route: 048
     Dates: start: 20041001
  3. PARACETAMOL [Concomitant]
     Indication: PAIN
     Route: 048
     Dates: start: 20000101
  4. GLUCOSAMINE [Concomitant]
     Indication: UNEVALUABLE EVENT
     Route: 048
     Dates: start: 20071120
  5. CO-AMILOFRUSE [Concomitant]
     Dosage: DRUG: COAMILOFRUME
     Route: 048
     Dates: start: 20010101
  6. CALCIUM GLUCONATE [Concomitant]
     Indication: OSTEOPOROSIS PROPHYLAXIS
     Route: 048
     Dates: start: 20040101
  7. LANSOPRAZOLE [Concomitant]
     Dosage: INDICATION NOT ADDED DUE TO ILLEGIBLE HANDWRITING.
     Route: 048
     Dates: start: 20020101

REACTIONS (2)
  - BLOOD GLUCOSE DECREASED [None]
  - ILL-DEFINED DISORDER [None]
